FAERS Safety Report 16431382 (Version 3)
Quarter: 2022Q4

REPORT INFORMATION
  Report Type: Report from Study
  Country: DE (occurrence: DE)
  Receive Date: 20190614
  Receipt Date: 20221018
  Transmission Date: 20230113
  Serious: Yes (Life-Threatening, Hospitalization, Disabling, Other)
  Sender: FDA-Public Use
  Company Number: DE-AMGEN-DEUNI2019077630

PATIENT
  Age: 79 Year
  Sex: Female
  Weight: 77 kg

DRUGS (33)
  1. LEUCOVORIN CALCIUM [Suspect]
     Active Substance: LEUCOVORIN CALCIUM
     Indication: Colorectal cancer metastatic
     Dosage: 740 MG, UNK
     Route: 065
     Dates: start: 20180423
  2. LEUCOVORIN CALCIUM [Suspect]
     Active Substance: LEUCOVORIN CALCIUM
     Dosage: 730 MILLIGRAM
     Route: 065
     Dates: start: 20180611
  3. LEUCOVORIN CALCIUM [Suspect]
     Active Substance: LEUCOVORIN CALCIUM
     Dosage: 720 MG, UNK
     Route: 065
     Dates: start: 20180802
  4. LEUCOVORIN CALCIUM [Suspect]
     Active Substance: LEUCOVORIN CALCIUM
     Dosage: 750 MG
     Dates: start: 20190211
  5. IRINOTECAN HYDROCHLORIDE [Suspect]
     Active Substance: IRINOTECAN HYDROCHLORIDE
     Indication: Colorectal cancer metastatic
     Dosage: 335 MG, UNK
     Route: 065
     Dates: start: 20180423
  6. IRINOTECAN HYDROCHLORIDE [Suspect]
     Active Substance: IRINOTECAN HYDROCHLORIDE
     Dosage: 325 MG, UNK
     Route: 065
     Dates: start: 20180611
  7. IRINOTECAN HYDROCHLORIDE [Suspect]
     Active Substance: IRINOTECAN HYDROCHLORIDE
     Dosage: 320 MG, UNK
     Route: 065
     Dates: start: 20180802
  8. IRINOTECAN HYDROCHLORIDE [Suspect]
     Active Substance: IRINOTECAN HYDROCHLORIDE
     Dosage: 330 MG
     Dates: start: 20190211
  9. FLUOROURACIL [Suspect]
     Active Substance: FLUOROURACIL
     Indication: Colorectal cancer metastatic
     Dosage: 4440 MILLIGRAM
     Route: 042
     Dates: start: 20180423
  10. FLUOROURACIL [Suspect]
     Active Substance: FLUOROURACIL
     Dosage: 740 MILLIGRAM
     Route: 042
     Dates: start: 20180423
  11. FLUOROURACIL [Suspect]
     Active Substance: FLUOROURACIL
     Dosage: 550 MILLIGRAM
     Route: 042
     Dates: start: 20180611
  12. FLUOROURACIL [Suspect]
     Active Substance: FLUOROURACIL
     Dosage: 4390 MILLIGRAM
     Route: 042
     Dates: start: 20180611
  13. FLUOROURACIL [Suspect]
     Active Substance: FLUOROURACIL
     Dosage: 4365 MILLIGRAM
     Route: 042
     Dates: start: 20180625
  14. FLUOROURACIL [Suspect]
     Active Substance: FLUOROURACIL
     Dosage: 4315 MILLIGRAM
     Route: 042
     Dates: start: 20180802
  15. FLUOROURACIL [Suspect]
     Active Substance: FLUOROURACIL
     Dosage: 540 MILLIGRAM
     Route: 042
     Dates: start: 20180802
  16. FLUOROURACIL [Suspect]
     Active Substance: FLUOROURACIL
     Dosage: 560 MILLIGRAM
     Route: 042
     Dates: start: 20190211
  17. FLUOROURACIL [Suspect]
     Active Substance: FLUOROURACIL
     Dosage: 3365 MILLIGRAM
     Route: 042
     Dates: start: 20190211
  18. VECTIBIX [Suspect]
     Active Substance: PANITUMUMAB
     Indication: Colorectal cancer metastatic
     Dosage: 455 MG, UNK
     Route: 042
     Dates: start: 20180423
  19. VECTIBIX [Suspect]
     Active Substance: PANITUMUMAB
     Dosage: 440 MG, UNK
     Route: 042
     Dates: start: 20180611
  20. VECTIBIX [Suspect]
     Active Substance: PANITUMUMAB
     Dosage: 435 MG, UNK
     Route: 042
     Dates: start: 20180625
  21. VECTIBIX [Suspect]
     Active Substance: PANITUMUMAB
     Dosage: 420 MG, UNK
     Route: 042
     Dates: start: 20180802
  22. VECTIBIX [Suspect]
     Active Substance: PANITUMUMAB
     Dosage: 465 MG
     Route: 042
     Dates: start: 20190211
  23. AMLODIPINE [Concomitant]
     Active Substance: AMLODIPINE BESYLATE
     Indication: Hypertension
     Dosage: 5 MILLIGRAM, QD
     Route: 048
  24. AMLODIPINE [Concomitant]
     Active Substance: AMLODIPINE BESYLATE
     Indication: Hypertension
  25. BISOPROLOL [Concomitant]
     Active Substance: BISOPROLOL
     Indication: Hypertension
     Dosage: 2.5 MILLIGRAM, BID
     Route: 048
  26. BISOPROLOL [Concomitant]
     Active Substance: BISOPROLOL
     Indication: Hypertension
  27. CHOLECALCIFEROL [Concomitant]
     Active Substance: CHOLECALCIFEROL
     Indication: Vitamin D deficiency
     Dosage: 2000 IU, WEEKLY
     Route: 048
     Dates: start: 20171030
  28. CHOLECALCIFEROL [Concomitant]
     Active Substance: CHOLECALCIFEROL
     Route: 048
     Dates: start: 20171030
  29. SELENASE [SODIUM SELENITE] [Concomitant]
     Indication: Selenium deficiency
     Dosage: 100 UG, 1X/DAY
     Route: 048
  30. BENSERAZIDE\LEVODOPA [Concomitant]
     Active Substance: BENSERAZIDE\LEVODOPA
     Indication: Restless legs syndrome
     Dosage: 2 UNK, 1X/DAY
     Route: 048
  31. BENSERAZIDE\LEVODOPA [Concomitant]
     Active Substance: BENSERAZIDE\LEVODOPA
     Route: 048
  32. CANDESARTAN [Concomitant]
     Active Substance: CANDESARTAN
     Indication: Hypertension
     Dosage: 4 MILLIGRAM, QD
     Route: 048
  33. CANDESARTAN [Concomitant]
     Active Substance: CANDESARTAN
     Indication: Hypertension

REACTIONS (2)
  - Embolism [Recovered/Resolved]
  - Pulmonary embolism [Recovered/Resolved]

NARRATIVE: CASE EVENT DATE: 20180822
